FAERS Safety Report 12834615 (Version 2)
Quarter: 2016Q4

REPORT INFORMATION
  Report Type: Spontaneous
  Country: US (occurrence: US)
  Receive Date: 20161010
  Receipt Date: 20161014
  Transmission Date: 20170207
  Serious: Yes (Life-Threatening, Hospitalization)
  Sender: FDA-Public Use
  Company Number: US-PFIZER INC-2016468996

PATIENT
  Age: 44 Year
  Sex: Male

DRUGS (13)
  1. LYRICA [Suspect]
     Active Substance: PREGABALIN
     Indication: DIABETIC NEUROPATHY
     Dosage: 400 MG, DAILY TOTAL (100 MG IN THE MORNING, 100 MG IN THE AFTERNOON, AND 200 MG AT BEDTIME)
     Route: 048
     Dates: start: 20141105
  2. LYRICA [Suspect]
     Active Substance: PREGABALIN
     Dosage: 75 MG, DAILY
     Dates: start: 2016
  3. LISINOPRIL. [Concomitant]
     Active Substance: LISINOPRIL
     Dosage: 20 MG, DAILY
     Route: 048
  4. GLYBURIDE (MICRONIZED) [Concomitant]
     Indication: DIABETES MELLITUS
     Dosage: 6 MG, 2X/DAY
     Route: 048
     Dates: start: 20140714
  5. KOMBIGLYZE XR [Concomitant]
     Active Substance: METFORMIN HYDROCHLORIDE\SAXAGLIPTIN HYDROCHLORIDE
     Dosage: UNK UNK, DAILY (2 TABLETS DAILY)(SAX GLIPTIN 2.5MG- METFORMIN HCL1000MG )
     Route: 048
     Dates: start: 20160712
  6. SULFAMETHOXAZOLE AND TRIMETHOPRIM [Concomitant]
     Active Substance: SULFAMETHOXAZOLE\TRIMETHOPRIM
     Dosage: 1 DF, 2X/DAY (SULFAMETHOXAZOLE800MG/TRIMETHOPRIM160MG )
     Route: 048
     Dates: start: 20160711
  7. CRESTOR [Concomitant]
     Active Substance: ROSUVASTATIN CALCIUM
     Dosage: 20 MG, DAILY
     Route: 048
     Dates: start: 20160712
  8. LYRICA [Suspect]
     Active Substance: PREGABALIN
     Dosage: 100 MG, 2X/DAY ONE CAPSULE IN THE MORNING AND ONE CAPSULE AT NIGHT
     Route: 048
     Dates: start: 201606
  9. LEVEMIR [Concomitant]
     Active Substance: INSULIN DETEMIR
     Dosage: UNK, 2X/DAY (INSULIN DETEMIR 100UNIT/ML; SIG: 20-30 UNITS 2X/DAY)
     Route: 058
     Dates: start: 20160712
  10. PANTOPRAZOLE SODIUM. [Concomitant]
     Active Substance: PANTOPRAZOLE SODIUM
     Dosage: 40 MG, DAILY
     Route: 048
  11. COLLAGENASE SANTYL [Concomitant]
     Active Substance: COLLAGENASE CLOSTRIDIUM HISTOLYTICUM
     Dosage: UNK UNK, 1X/DAY: SANTYL 250 UNIT/GM
  12. FARXIGA [Concomitant]
     Active Substance: DAPAGLIFLOZIN PROPANEDIOL
     Indication: DIABETES MELLITUS
     Dosage: 10 MG, DAILY
     Route: 048
     Dates: start: 20140714
  13. LYRICA [Suspect]
     Active Substance: PREGABALIN
     Dosage: 50 MG, DAILY
     Dates: start: 201608

REACTIONS (5)
  - Intentional product misuse [Not Recovered/Not Resolved]
  - Burning sensation [Not Recovered/Not Resolved]
  - Paraesthesia [Not Recovered/Not Resolved]
  - Gangrene [Unknown]
  - Ketoacidosis [Unknown]

NARRATIVE: CASE EVENT DATE: 2016
